FAERS Safety Report 8327920-X (Version None)
Quarter: 2012Q2

REPORT INFORMATION
  Report Type: 
  Country: None (occurrence: None)
  Receive Date: 20120502
  Receipt Date: 20120418
  Transmission Date: 20120825
  Serious: Yes (Life-Threatening, Other)
  Sender: FDA-Public Use
  Company Number: CN-JNJFOC-20111202321

PATIENT
  Sex: Female

DRUGS (1)
  1. SPORANOX [Suspect]
     Indication: ONYCHOMYCOSIS
     Route: 048
     Dates: start: 20111114, end: 20111127

REACTIONS (6)
  - PAIN [None]
  - ASTHENIA [None]
  - DYSKINESIA [None]
  - DYSAESTHESIA [None]
  - MOBILITY DECREASED [None]
  - HEADACHE [None]
